FAERS Safety Report 9976646 (Version 1)
Quarter: 2014Q1

REPORT INFORMATION
  Report Type: Report from Study
  Country: US (occurrence: US)
  Receive Date: 20140306
  Receipt Date: 20140306
  Transmission Date: 20141002
  Serious: No
  Sender: FDA-Public Use
  Company Number: US-ABBVIE-13P-163-1167347-00

PATIENT
  Age: 39 Year
  Sex: Female
  Weight: 56.3 kg

DRUGS (4)
  1. HUMIRA [Suspect]
     Indication: CROHN^S DISEASE
     Route: 058
     Dates: start: 20131022, end: 20131022
  2. HUMIRA [Suspect]
     Route: 058
     Dates: start: 20131105, end: 20131105
  3. HUMIRA [Suspect]
     Route: 058
     Dates: start: 20131119
  4. PREDNISONE [Concomitant]
     Indication: CROHN^S DISEASE

REACTIONS (1)
  - Nausea [Recovered/Resolved]
